FAERS Safety Report 10452184 (Version 2)
Quarter: 2014Q4

REPORT INFORMATION
  Report Type: Spontaneous
  Country: BR (occurrence: BR)
  Receive Date: 20140915
  Receipt Date: 20141021
  Transmission Date: 20150528
  Serious: Yes (Hospitalization, Other)
  Sender: FDA-Public Use
  Company Number: BR-ELI_LILLY_AND_COMPANY-BR201409001094

PATIENT
  Sex: Male
  Weight: 102 kg

DRUGS (11)
  1. DIGOXINA [Concomitant]
     Active Substance: DIGOXIN
     Indication: CARDIAC DISORDER
     Dosage: UNK UNK, QD
  2. HUMULIN N [Suspect]
     Active Substance: INSULIN HUMAN
     Indication: BLOOD GLUCOSE INCREASED
     Dosage: 15 IU, EACH MORNING
     Route: 058
  3. ATENSINA [Concomitant]
     Active Substance: CLONIDINE
     Indication: CARDIAC DISORDER
     Dosage: UNK UNK, QD
  4. ARADOIS [Concomitant]
     Active Substance: LOSARTAN POTASSIUM
     Indication: CARDIAC DISORDER
     Dosage: UNK UNK, QD
     Route: 065
  5. HUMULIN N [Suspect]
     Active Substance: INSULIN HUMAN
     Dosage: 23 IU, EACH EVENING
     Route: 058
  6. AAS [Concomitant]
     Active Substance: ASPIRIN
     Indication: CARDIAC DISORDER
     Dosage: UNK UNK, QD
  7. HUMULIN N [Suspect]
     Active Substance: INSULIN HUMAN
     Dosage: 23 IU, QD
     Route: 058
  8. HIDROCLOROTIAZIDA [Concomitant]
     Active Substance: HYDROCHLOROTHIAZIDE
     Indication: CARDIAC DISORDER
     Dosage: UNK UNK, QD
  9. VASTAREL [Concomitant]
     Active Substance: TRIMETAZIDINE DIHYDROCHLORIDE
     Indication: CARDIAC DISORDER
     Dosage: UNK UNK, QD
  10. CARVEDILOL. [Concomitant]
     Active Substance: CARVEDILOL
     Indication: CARDIAC DISORDER
     Dosage: UNK UNK, QD
  11. AMLODIPIN                          /00972401/ [Concomitant]
     Active Substance: AMLODIPINE BESYLATE
     Indication: CARDIAC DISORDER
     Dosage: UNK UNK, QD

REACTIONS (4)
  - Coronary artery disease [Recovering/Resolving]
  - Blood glucose increased [Recovered/Resolved]
  - Weight decreased [Unknown]
  - Drug ineffective [Not Recovered/Not Resolved]
